FAERS Safety Report 4891158-9 (Version None)
Quarter: 2006Q1

REPORT INFORMATION
  Report Type: 
  Country: None (occurrence: None)
  Receive Date: 20060125
  Receipt Date: 20050728
  Transmission Date: 20060701
  Serious: Yes (Hospitalization, Disabling)
  Sender: FDA-Public Use
  Company Number: US-MERCK-0508USA00810

PATIENT
  Age: 49 Year
  Sex: Male
  Weight: 114 kg

DRUGS (13)
  1. PROTONIX [Concomitant]
     Route: 065
  2. ASPIRIN [Concomitant]
     Route: 065
  3. PENICILLIN (UNSPECIFIED) [Concomitant]
     Route: 065
  4. WELLBUTRIN [Concomitant]
     Route: 065
  5. EFFEXOR [Concomitant]
     Route: 065
  6. VIOXX [Suspect]
     Indication: SHOULDER PAIN
     Route: 048
     Dates: start: 20040201, end: 20040916
  7. VIOXX [Suspect]
     Indication: NECK PAIN
     Route: 048
     Dates: start: 20040201, end: 20040916
  8. ZESTORETIC [Concomitant]
     Route: 065
  9. VICODIN [Concomitant]
     Route: 065
  10. LIPITOR [Concomitant]
     Route: 065
  11. LISINOPRIL [Concomitant]
     Route: 065
  12. TOPROL-XL [Concomitant]
     Route: 065
  13. PLAVIX [Concomitant]
     Route: 065

REACTIONS (14)
  - ACUTE MYOCARDIAL INFARCTION [None]
  - CARDIAC DISORDER [None]
  - CARDIAC MURMUR [None]
  - CARPAL TUNNEL SYNDROME [None]
  - CORONARY ARTERY DISEASE [None]
  - DIZZINESS [None]
  - HYPOTENSION [None]
  - INSOMNIA [None]
  - INTERVERTEBRAL DISC DEGENERATION [None]
  - OSTEOARTHRITIS [None]
  - PAIN [None]
  - TRICUSPID VALVE INCOMPETENCE [None]
  - VENTRICULAR HYPERTROPHY [None]
  - VERTIGO [None]
